FAERS Safety Report 10488614 (Version 2)
Quarter: 2014Q4

REPORT INFORMATION
  Report Type: Other
  Country: US (occurrence: US)
  Receive Date: 20141002
  Receipt Date: 20141002
  Transmission Date: 20150528
  Serious: Yes (Other)
  Sender: FDA-Public Use
  Company Number: US-SHIRE-US201404005

PATIENT
  Age: 46 Year
  Sex: Female

DRUGS (1)
  1. FIRAZYR [Suspect]
     Active Substance: ICATIBANT ACETATE
     Indication: HEREDITARY ANGIOEDEMA
     Dosage: 30 MG, UNKNOWN
     Route: 058

REACTIONS (12)
  - Abdominal mass [Recovered/Resolved]
  - Mass [Unknown]
  - Excessive skin [Unknown]
  - Injection site pain [Recovered/Resolved]
  - Fatigue [Unknown]
  - Hypertension [Unknown]
  - Pneumonia [Recovered/Resolved]
  - Procedural complication [Unknown]
  - Weight decreased [Unknown]
  - Cardiac disorder [Unknown]
  - Pain [Unknown]
  - Dizziness [Unknown]

NARRATIVE: CASE EVENT DATE: 2014
